FAERS Safety Report 16006767 (Version 2)
Quarter: 2019Q2

REPORT INFORMATION
  Report Type: Spontaneous
  Country: FR (occurrence: FR)
  Receive Date: 20190226
  Receipt Date: 20190621
  Transmission Date: 20190711
  Serious: Yes (Hospitalization)
  Sender: FDA-Public Use
  Company Number: FR-SA-2019SA047385

PATIENT
  Age: 81 Year
  Sex: Male
  Weight: 98 kg

DRUGS (7)
  1. AMOXICILLIN TRIHYDRATE [Suspect]
     Active Substance: AMOXICILLIN
     Indication: ERYSIPELAS
     Dosage: 6 G, QD
     Route: 048
     Dates: start: 20190116, end: 20190121
  2. LOVENOX [Suspect]
     Active Substance: ENOXAPARIN SODIUM
     Indication: THROMBOSIS PROPHYLAXIS
     Dosage: UNK UNK, UNK
     Route: 058
     Dates: start: 20190118, end: 20190121
  3. NEFOPAM MEDISOL [Suspect]
     Active Substance: NEFOPAM HYDROCHLORIDE
     Indication: ANALGESIC INTERVENTION SUPPORTIVE THERAPY
     Dosage: UNK UNK, UNK
     Route: 048
     Dates: start: 20190112, end: 20190122
  4. ECONAZOLE ARROW [Concomitant]
     Active Substance: ECONAZOLE
     Indication: INTERTRIGO
     Dosage: UNK UNK, UNK
     Route: 061
     Dates: start: 20190112
  5. CLINDAMYCIN HYDROCHLORIDE. [Suspect]
     Active Substance: CLINDAMYCIN HYDROCHLORIDE
     Indication: ERYSIPELAS
     Dosage: 1800 MG, QD
     Route: 048
     Dates: start: 20190115, end: 20190121
  6. RACECADOTRIL [Suspect]
     Active Substance: RACECADOTRIL
     Indication: PRODUCT USED FOR UNKNOWN INDICATION
     Dosage: 3 DF, QD
     Route: 048
     Dates: start: 20190118, end: 20190119
  7. COLCHICINE. [Suspect]
     Active Substance: COLCHICINE
     Indication: ARTHRITIS
     Dosage: 1 MG, QD
     Route: 048
     Dates: start: 20190115, end: 20190119

REACTIONS (1)
  - Acute generalised exanthematous pustulosis [Recovering/Resolving]

NARRATIVE: CASE EVENT DATE: 20190120
